FAERS Safety Report 14833061 (Version 1)
Quarter: 2018Q2

REPORT INFORMATION
  Report Type: Spontaneous
  Country: US (occurrence: US)
  Receive Date: 20180501
  Receipt Date: 20180501
  Transmission Date: 20180711
  Serious: No
  Sender: FDA-Public Use
  Company Number: US-EPIC PHARMA LLC-2017EPC00181

PATIENT
  Age: 58 Year
  Sex: Male

DRUGS (1)
  1. AMLODIPINE [Suspect]
     Active Substance: AMLODIPINE BESYLATE
     Indication: HYPERTENSION
     Dosage: UNK, ONCE
     Dates: start: 20170802

REACTIONS (6)
  - Pruritus [Unknown]
  - Dry mouth [Unknown]
  - Flushing [Unknown]
  - Tinnitus [Unknown]
  - Eye irritation [Not Recovered/Not Resolved]
  - Groin pain [Unknown]

NARRATIVE: CASE EVENT DATE: 20170802
